FAERS Safety Report 24311284 (Version 1)
Quarter: 2024Q3

REPORT INFORMATION
  Report Type: Spontaneous
  Country: TR (occurrence: TR)
  Receive Date: 20240912
  Receipt Date: 20240912
  Transmission Date: 20241017
  Serious: Yes (Hospitalization)
  Sender: SANDOZ
  Company Number: TR-MLMSERVICE-20240830-PI177084-00336-1

PATIENT
  Age: 50 Year
  Sex: Female

DRUGS (1)
  1. ZOLEDRONIC ACID [Suspect]
     Active Substance: ZOLEDRONIC ACID
     Indication: Osteoporosis
     Dosage: INTRAVENOUS INFUSION OF ZOLAC 5 MG FOR THE FIRST TIME
     Route: 042

REACTIONS (1)
  - Vasculitis [Recovered/Resolved]
